FAERS Safety Report 16533547 (Version 1)
Quarter: 2019Q3

REPORT INFORMATION
  Report Type: Spontaneous
  Country: JP (occurrence: JP)
  Receive Date: 20190705
  Receipt Date: 20190705
  Transmission Date: 20191004
  Serious: Yes (Other)
  Sender: FDA-Public Use
  Company Number: JP-NAPPMUNDI-GBR-2019-0067776

PATIENT
  Sex: Male

DRUGS (4)
  1. NORSPAN [Suspect]
     Active Substance: BUPRENORPHINE
     Indication: INTERVERTEBRAL DISC DISORDER
     Dosage: 20 MCG, Q1H (STRENGTH 20 MG)
     Route: 062
     Dates: start: 20190422, end: 20190422
  2. NORSPAN [Suspect]
     Active Substance: BUPRENORPHINE
     Dosage: 5 MCG, Q1H (STRENGTH 5 MG)
     Route: 062
     Dates: start: 20190402, end: 20190408
  3. LOXOPROFEN SODIUM [Concomitant]
     Active Substance: LOXOPROFEN SODIUM
     Dosage: UNK, PRN
  4. NORSPAN [Suspect]
     Active Substance: BUPRENORPHINE
     Indication: OSTEOARTHRITIS
     Dosage: 10 MCG, Q1H (STRENGTH 10 MG)
     Route: 062
     Dates: start: 20190409, end: 20190421

REACTIONS (5)
  - Miosis [Recovered/Resolved]
  - Dysuria [Recovered/Resolved]
  - Dyspnoea [Recovered/Resolved]
  - Erythema [Recovered/Resolved]
  - Product adhesion issue [Unknown]

NARRATIVE: CASE EVENT DATE: 20190421
